FAERS Safety Report 8098761-6 (Version None)
Quarter: 2012Q1

REPORT INFORMATION
  Report Type: 
  Country: None (occurrence: None)
  Receive Date: 20120131
  Receipt Date: 20120126
  Transmission Date: 20120608
  Serious: Yes (Hospitalization, Other)
  Sender: FDA-Public Use
  Company Number: US-ACTELION-A-NJ2011-58672

PATIENT

DRUGS (17)
  1. ONDANSETRON HCL [Concomitant]
  2. PROTONIX [Concomitant]
  3. TRACLEER [Suspect]
     Dosage: 62.5 MG, BID
     Route: 048
     Dates: start: 20030519
  4. EPOPROSTENOL SODIUM [Suspect]
     Indication: PULMONARY ARTERIAL HYPERTENSION
     Dosage: 3 MG, UNK
     Route: 041
     Dates: start: 20101005
  5. ALDACTONE [Concomitant]
  6. CARDIZEM CD [Concomitant]
  7. REVATIO [Concomitant]
  8. XIFAXAN [Concomitant]
  9. REGLAN [Concomitant]
  10. ATIVAN [Concomitant]
  11. NORVASC [Concomitant]
  12. SINGULAIR [Concomitant]
  13. SYNTHROID [Concomitant]
  14. MIRAPEX [Concomitant]
  15. TRACLEER [Suspect]
     Indication: PULMONARY ARTERIAL HYPERTENSION
     Dosage: 125 MG, BID
     Route: 048
  16. LASIX [Concomitant]
  17. POTASSIUM CHLORIDE [Concomitant]

REACTIONS (2)
  - PALPITATIONS [None]
  - HYPOKALAEMIA [None]
